FAERS Safety Report 11985093 (Version 2)
Quarter: 2017Q4

REPORT INFORMATION
  Report Type: Spontaneous
  Country: US (occurrence: US)
  Receive Date: 20160201
  Receipt Date: 20171019
  Transmission Date: 20180320
  Serious: Yes (Other)
  Sender: FDA-Public Use
  Company Number: US-MYLANLABS-2016M1003553

PATIENT
  Age: 29 Year
  Sex: Male

DRUGS (1)
  1. URSODEOXYCHOLIC ACID [Suspect]
     Active Substance: URSODIOL
     Indication: PRODUCT USED FOR UNKNOWN INDICATION
     Route: 065

REACTIONS (3)
  - Angioedema [Recovered/Resolved]
  - Hypersensitivity [Recovered/Resolved]
  - Atrial fibrillation [Recovered/Resolved]
